FAERS Safety Report 9737005 (Version 1)
Quarter: 2013Q4

REPORT INFORMATION
  Report Type: Spontaneous
  Country: US (occurrence: US)
  Receive Date: 20131206
  Receipt Date: 20131206
  Transmission Date: 20140711
  Serious: No
  Sender: FDA-Public Use
  Company Number: US-GILEAD-2009-0023133

PATIENT
  Sex: Male

DRUGS (11)
  1. LETAIRIS [Suspect]
     Indication: PULMONARY ARTERIAL HYPERTENSION
     Route: 048
     Dates: start: 20090219
  2. NIFEDIPINE [Concomitant]
  3. ENALAPRIL [Concomitant]
  4. SIMVASTATIN [Concomitant]
  5. ZOLPIDEM [Concomitant]
  6. PERCOCET [Concomitant]
  7. MORPHINE [Concomitant]
  8. BACTRIM [Concomitant]
  9. CELEXA [Concomitant]
  10. MOBIC [Concomitant]
  11. PENTOXYFYLLINE [Concomitant]

REACTIONS (1)
  - Nasal congestion [Recovering/Resolving]
